FAERS Safety Report 9423267 (Version 1)
Quarter: 2013Q3

REPORT INFORMATION
  Report Type: Spontaneous
  Country: US (occurrence: US)
  Receive Date: 20130726
  Receipt Date: 20130726
  Transmission Date: 20140515
  Serious: No
  Sender: FDA-Public Use
  Company Number: US-BAYER-2013-088657

PATIENT
  Sex: Female

DRUGS (1)
  1. STIVARGA [Suspect]
     Indication: COLORECTAL CANCER
     Dosage: 160 MG, UNK
     Route: 048
     Dates: start: 20130702, end: 20130712

REACTIONS (2)
  - Neutropenia [Not Recovered/Not Resolved]
  - Rash generalised [Not Recovered/Not Resolved]
